FAERS Safety Report 10749145 (Version 1)
Quarter: 2015Q1

REPORT INFORMATION
  Report Type: Spontaneous
  Country: US (occurrence: None)
  Receive Date: 20150128
  Receipt Date: 20150128
  Transmission Date: 20150721
  Serious: No
  Sender: FDA-Public Use
  Company Number: None

PATIENT

DRUGS (2)
  1. DRY EYE OMEGA BENEFITS PRN [Suspect]
     Active Substance: DIETARY SUPPLEMENT
     Indication: NUTRITIONAL SUPPLEMENTATION
     Dosage: 2 CAPS
     Route: 048
  2. TACROLIMUS. [Suspect]
     Active Substance: TACROLIMUS

REACTIONS (3)
  - Drug level increased [None]
  - Dehydration [None]
  - Blood creatinine increased [None]

NARRATIVE: CASE EVENT DATE: 20141215
